FAERS Safety Report 5144442-8 (Version None)
Quarter: 2006Q4

REPORT INFORMATION
  Report Type: 
  Country: None (occurrence: None)
  Receive Date: 20061031
  Receipt Date: 20061016
  Transmission Date: 20070319
  Serious: Yes (Other)
  Sender: FDA-Public Use
  Company Number: 2006BL006097

PATIENT
  Sex: Male

DRUGS (2)
  1. DEXAMYTREX AUGENTROPFEN (DEXAMETHASONE/GENTAMICIN SULFATE) [Suspect]
     Indication: CORNEAL TRANSPLANT
     Dosage: 3 TIMES A DAY; TOPICAL
     Route: 061
  2. HYLO-COMOD [Suspect]
     Indication: CORNEAL TRANSPLANT
     Dosage: EVERY 4 HOURS; TOPICAL
     Route: 061

REACTIONS (1)
  - CORNEAL DEPOSITS [None]
